FAERS Safety Report 5940580-8 (Version None)
Quarter: 2008Q4

REPORT INFORMATION
  Report Type: 
  Country: None (occurrence: None)
  Receive Date: 20081104
  Receipt Date: 20081023
  Transmission Date: 20090506
  Serious: Yes (Death, Other)
  Sender: FDA-Public Use
  Company Number: ES-ROCHE-593555

PATIENT
  Age: 51 Year
  Sex: Male

DRUGS (7)
  1. CAPECITABINE [Suspect]
     Dosage: CAPECITABINE PRESCRIBED FOR THE 1ST 15 DAYS EVERY 3 WEEKS PERIOD, BUT PT RECEIVED DRUG FOR 6 WEEKS
     Route: 065
  2. DEXKETOPROFEN [Concomitant]
  3. TRAMADOL HCL [Concomitant]
  4. OMEPRAZOLE [Concomitant]
  5. MEGESTROL ACETATE [Concomitant]
  6. METRONIDAZOLE [Concomitant]
  7. CIPROFLOXACIN [Concomitant]

REACTIONS (4)
  - DRUG ADMINISTRATION ERROR [None]
  - INAPPROPRIATE SCHEDULE OF DRUG ADMINISTRATION [None]
  - PALMAR-PLANTAR ERYTHRODYSAESTHESIA SYNDROME [None]
  - PYOGENIC GRANULOMA [None]
